FAERS Safety Report 25612435 (Version 1)
Quarter: 2025Q3

REPORT INFORMATION
  Report Type: Spontaneous
  Country: JP (occurrence: JP)
  Receive Date: 20250728
  Receipt Date: 20250728
  Transmission Date: 20251021
  Serious: Yes (Other)
  Sender: PFIZER
  Company Number: JP-PFIZER INC-PV202500088500

PATIENT
  Age: 59 Year
  Sex: Female

DRUGS (8)
  1. ZYVOX [Suspect]
     Active Substance: LINEZOLID
     Indication: Post procedural infection
     Dosage: 600 MG, 2X/DAY
     Route: 042
     Dates: start: 20250305, end: 20250318
  2. CLINDAMYCIN PHOSPHATE [Suspect]
     Active Substance: CLINDAMYCIN PHOSPHATE
     Indication: Post procedural infection
     Dosage: 600 MG, 4X/DAY
     Route: 042
     Dates: start: 20250305, end: 20250331
  3. RIFAMPIN [Suspect]
     Active Substance: RIFAMPIN
     Indication: Post procedural infection
     Dosage: 450 MG, 1X/DAY
     Route: 048
     Dates: start: 20250305, end: 20250331
  4. LEVOFLOXACIN [Suspect]
     Active Substance: LEVOFLOXACIN
     Indication: Post procedural infection
     Dosage: 500 MG, 1X/DAY
     Route: 048
     Dates: start: 20250319, end: 20250331
  5. LOXOPROFEN [Suspect]
     Active Substance: LOXOPROFEN
     Indication: Post procedural infection
     Dosage: 60 MG, 3X/DAY
     Route: 048
     Dates: start: 20250321, end: 20250331
  6. LANSOPRAZOLE [Suspect]
     Active Substance: LANSOPRAZOLE
     Indication: Post procedural infection
     Dosage: 15 MG, 1X/DAY
     Route: 048
     Dates: start: 20250304, end: 20250331
  7. CALONAL [Suspect]
     Active Substance: ACETAMINOPHEN
     Indication: Post procedural infection
     Dosage: 400 MG, 3X/DAY
     Route: 048
     Dates: start: 20250314, end: 20250331
  8. VANCOMYCIN [Suspect]
     Active Substance: VANCOMYCIN
     Indication: Post procedural infection
     Route: 065
     Dates: start: 20250305, end: 20250305

REACTIONS (3)
  - Drug eruption [Recovering/Resolving]
  - Erythema multiforme [Recovering/Resolving]
  - Leukopenia [Recovered/Resolved]

NARRATIVE: CASE EVENT DATE: 20250327
